FAERS Safety Report 8322141-9 (Version None)
Quarter: 2012Q1

REPORT INFORMATION
  Report Type: 
  Country: None (occurrence: None)
  Receive Date: 20120315
  Receipt Date: 20110215
  Transmission Date: 20120608
  Serious: No
  Sender: FDA-Public Use
  Company Number: PHHY2011US13176

PATIENT
  Sex: Female

DRUGS (1)
  1. GILENYA [Suspect]
     Dosage: 0.5 MG, QD, ORAL
     Route: 048
     Dates: start: 20101214, end: 20101228

REACTIONS (8)
  - PAIN IN EXTREMITY [None]
  - ABDOMINAL PAIN [None]
  - LACRIMATION INCREASED [None]
  - FLATULENCE [None]
  - NAUSEA [None]
  - VISION BLURRED [None]
  - VOMITING [None]
  - DIZZINESS [None]
